FAERS Safety Report 25962691 (Version 1)
Quarter: 2025Q4

REPORT INFORMATION
  Report Type: Spontaneous
  Country: GB (occurrence: GB)
  Receive Date: 20251027
  Receipt Date: 20251027
  Transmission Date: 20260118
  Serious: Yes (Other)
  Sender: MYLAN
  Company Number: None

PATIENT
  Age: 41 Year
  Sex: Female
  Weight: 52 kg

DRUGS (8)
  1. MIRTAZAPINE [Suspect]
     Active Substance: MIRTAZAPINE
     Indication: Gastrointestinal pain
     Dosage: 15 MILLIGRAM, PM (15 MILLIGRAM AT NIGHT)
     Route: 065
     Dates: start: 20250901
  2. MIRTAZAPINE [Suspect]
     Active Substance: MIRTAZAPINE
     Dosage: 15 MILLIGRAM, PM (15 MILLIGRAM AT NIGHT)
     Dates: start: 20250901
  3. MIRTAZAPINE [Suspect]
     Active Substance: MIRTAZAPINE
     Dosage: 15 MILLIGRAM, PM (15 MILLIGRAM AT NIGHT)
     Dates: start: 20250901
  4. MIRTAZAPINE [Suspect]
     Active Substance: MIRTAZAPINE
     Dosage: 15 MILLIGRAM, PM (15 MILLIGRAM AT NIGHT)
     Route: 065
     Dates: start: 20250901
  5. MIRTAZAPINE [Suspect]
     Active Substance: MIRTAZAPINE
     Dosage: 15 MILLIGRAM, PM (15 MILLIGRAM AT NIGHT)
     Route: 065
     Dates: start: 20250905
  6. MIRTAZAPINE [Suspect]
     Active Substance: MIRTAZAPINE
     Dosage: 15 MILLIGRAM, PM (15 MILLIGRAM AT NIGHT)
     Dates: start: 20250905
  7. MIRTAZAPINE [Suspect]
     Active Substance: MIRTAZAPINE
     Dosage: 15 MILLIGRAM, PM (15 MILLIGRAM AT NIGHT)
     Dates: start: 20250905
  8. MIRTAZAPINE [Suspect]
     Active Substance: MIRTAZAPINE
     Dosage: 15 MILLIGRAM, PM (15 MILLIGRAM AT NIGHT)
     Route: 065
     Dates: start: 20250905

REACTIONS (6)
  - Oral pain [Not Recovered/Not Resolved]
  - Eye pain [Not Recovered/Not Resolved]
  - Mouth ulceration [Not Recovered/Not Resolved]
  - Depressed mood [Not Recovered/Not Resolved]
  - Anxiety [Not Recovered/Not Resolved]
  - Medication error [Unknown]

NARRATIVE: CASE EVENT DATE: 20250905
